FAERS Safety Report 9329826 (Version 1)
Quarter: 2013Q2

REPORT INFORMATION
  Report Type: Spontaneous
  Country: US (occurrence: US)
  Receive Date: 20130604
  Receipt Date: 20130604
  Transmission Date: 20140414
  Serious: No
  Sender: FDA-Public Use
  Company Number: US-SANOFI-AVENTIS-2013SA003453

PATIENT
  Sex: 0

DRUGS (1)
  1. LANTUS [Suspect]

REACTIONS (2)
  - Injection site pain [Unknown]
  - Injection site bruising [Unknown]
